FAERS Safety Report 20458556 (Version 4)
Quarter: 2022Q2

REPORT INFORMATION
  Report Type: Spontaneous
  Country: US (occurrence: US)
  Receive Date: 20220211
  Receipt Date: 20220405
  Transmission Date: 20220721
  Serious: Yes (Hospitalization)
  Sender: FDA-Public Use
  Company Number: US-DECIPHERA PHARMACEUTICALS LLC-2022US000122

PATIENT
  Sex: Female

DRUGS (1)
  1. QINLOCK [Suspect]
     Active Substance: RIPRETINIB
     Indication: Product used for unknown indication
     Dosage: 150 MILLIGRAM, QD
     Route: 048

REACTIONS (11)
  - Palmar-plantar erythrodysaesthesia syndrome [Not Recovered/Not Resolved]
  - Swelling [Unknown]
  - Stress [Unknown]
  - Epistaxis [Unknown]
  - Oropharyngeal pain [Unknown]
  - Inflammation [Unknown]
  - Insomnia [Unknown]
  - Diarrhoea [Recovering/Resolving]
  - Constipation [Unknown]
  - Weight decreased [Unknown]
  - Dyspnoea [Unknown]
